FAERS Safety Report 25854708 (Version 1)
Quarter: 2025Q3

REPORT INFORMATION
  Report Type: Spontaneous
  Country: EU (occurrence: EU)
  Receive Date: 20250927
  Receipt Date: 20250927
  Transmission Date: 20251020
  Serious: Yes (Other)
  Sender: SANOFI AVENTIS
  Company Number: EU-AMK-291456

PATIENT
  Age: 63 Year
  Sex: Male
  Weight: 68 kg

DRUGS (22)
  1. DUPIXENT [Suspect]
     Active Substance: DUPILUMAB
     Indication: Dermatitis atopic
     Dosage: UNK UNK, QOW
     Dates: start: 20241104, end: 20250824
  2. LERCANIDIPINE [Concomitant]
     Active Substance: LERCANIDIPINE
  3. TORSEMIDE [Concomitant]
     Active Substance: TORSEMIDE
  4. CHOLECALCIFEROL [Concomitant]
     Active Substance: CHOLECALCIFEROL
  5. Novalgin [Concomitant]
  6. URAPIDIL [Concomitant]
     Active Substance: URAPIDIL
  7. POLYETHYLENE GLYCOLS [Concomitant]
     Active Substance: POLYETHYLENE GLYCOLS
  8. Renilon [Concomitant]
  9. Vitarenal [Concomitant]
  10. PANTOPRAZOLE SODIUM [Concomitant]
     Active Substance: PANTOPRAZOLE SODIUM
  11. CINACALCET HYDROCHLORIDE [Concomitant]
     Active Substance: CINACALCET HYDROCHLORIDE
  12. ZOPICLONE [Concomitant]
     Active Substance: ZOPICLONE
  13. VELPHORO [Concomitant]
     Active Substance: SUCROFERRIC OXYHYDROXIDE
  14. LACTULOSE [Concomitant]
     Active Substance: LACTULOSE
  15. Kalinor [Concomitant]
  16. CALCITRIOL [Concomitant]
     Active Substance: CALCITRIOL
  17. Zinkit [Concomitant]
  18. SODIUM BICARBONATE [Concomitant]
     Active Substance: SODIUM BICARBONATE
  19. CLOPIDOGREL [Concomitant]
     Active Substance: CLOPIDOGREL BISULFATE
  20. ASPIRIN [Concomitant]
     Active Substance: ASPIRIN
  21. ATORVASTATIN [Concomitant]
     Active Substance: ATORVASTATIN
  22. HYDROCHLOROTHIAZIDE\METOPROLOL SUCCINATE [Concomitant]
     Active Substance: HYDROCHLOROTHIAZIDE\METOPROLOL SUCCINATE

REACTIONS (1)
  - Breast pain [Not Recovered/Not Resolved]
